FAERS Safety Report 7416803-5 (Version None)
Quarter: 2011Q1

REPORT INFORMATION
  Report Type: 
  Country: None (occurrence: None)
  Receive Date: 20110302
  Receipt Date: 20101103
  Transmission Date: 20110831
  Serious: No
  Sender: FDA-Public Use
  Company Number: 019602

PATIENT
  Sex: Male

DRUGS (2)
  1. CIMZIA [Suspect]
     Dosage: SUBCUTANEOUS
     Route: 058
     Dates: start: 20100714
  2. VITAMIN B-12 [Concomitant]

REACTIONS (3)
  - VITAMIN B12 DECREASED [None]
  - VITAMIN D DECREASED [None]
  - NASOPHARYNGITIS [None]
